FAERS Safety Report 7241132-2 (Version None)
Quarter: 2011Q1

REPORT INFORMATION
  Report Type: 
  Country: None (occurrence: None)
  Receive Date: 20110124
  Receipt Date: 20110117
  Transmission Date: 20110831
  Serious: Yes (Other)
  Sender: FDA-Public Use
  Company Number: B0695127A

PATIENT
  Age: 33 Year
  Sex: Female

DRUGS (1)
  1. CIGANON CQ1 [Suspect]
     Indication: SMOKING CESSATION THERAPY
     Route: 062
     Dates: start: 20110117, end: 20110117

REACTIONS (2)
  - RESPIRATORY DISTRESS [None]
  - HEADACHE [None]
